FAERS Safety Report 20208676 (Version 1)
Quarter: 2021Q4

REPORT INFORMATION
  Report Type: Spontaneous
  Country: US (occurrence: US)
  Receive Date: 20211220
  Receipt Date: 20211220
  Transmission Date: 20220303
  Serious: Yes (Hospitalization, Other)
  Sender: FDA-Public Use
  Company Number: US-PFIZER INC-202101786960

PATIENT
  Age: 60 Year
  Sex: Female

DRUGS (1)
  1. XELJANZ XR [Suspect]
     Active Substance: TOFACITINIB CITRATE
     Indication: Rheumatoid arthritis
     Dosage: 11 MG, 1X/DAY
     Route: 048
     Dates: start: 202110, end: 20211105

REACTIONS (4)
  - Intestinal perforation [Unknown]
  - Sepsis [Unknown]
  - Coccidioidomycosis [Unknown]
  - Pain [Unknown]

NARRATIVE: CASE EVENT DATE: 20210101
